FAERS Safety Report 10425660 (Version 1)
Quarter: 2014Q3

REPORT INFORMATION
  Report Type: Report from Study
  Country: US (occurrence: US)
  Receive Date: 20140903
  Receipt Date: 20140903
  Transmission Date: 20150326
  Serious: Yes (Hospitalization, Other)
  Sender: FDA-Public Use
  Company Number: US-UCBSA-2014010223

PATIENT
  Sex: Female
  Weight: 54.42 kg

DRUGS (7)
  1. FOLIC ACID. [Concomitant]
     Active Substance: FOLIC ACID
     Dosage: 400 ?G, ONCE DAILY (QD)
     Route: 048
     Dates: start: 20121017, end: 20130726
  2. VENOFER [Concomitant]
     Active Substance: IRON SUCROSE
     Indication: ANAEMIA
     Dosage: UNK UNK, TOTAL
     Route: 042
     Dates: start: 20121101, end: 20121130
  3. TYLENOL [Concomitant]
     Active Substance: ACETAMINOPHEN
     Indication: HEADACHE
     Dosage: 1000 MG, 4.5 TOTAL
     Route: 048
     Dates: start: 20121017, end: 20130726
  4. ZOFRAN [Concomitant]
     Active Substance: ONDANSETRON HYDROCHLORIDE
     Indication: NAUSEA
     Dosage: 2 DF, ONCE DAILY (QD)
     Route: 048
     Dates: start: 20130101, end: 20130228
  5. CERTOLIZUMAB PEGOL RA [Suspect]
     Active Substance: CERTOLIZUMAB PEGOL
     Indication: CROHN^S DISEASE
     Dosage: 200 MG, EV 2 MONTHS
     Dates: start: 20121017, end: 20130115
  6. VENOFER [Concomitant]
     Active Substance: IRON SUCROSE
     Dosage: UNK, TOTAL (3.5 TOTAL)
     Route: 042
     Dates: start: 20130301, end: 20130331
  7. MESALAMINE. [Concomitant]
     Active Substance: MESALAMINE
     Indication: CROHN^S DISEASE
     Dosage: 2 PILLS 2 TIMES TOTAL
     Dates: start: 20130101, end: 20130131

REACTIONS (4)
  - Pregnancy [Unknown]
  - Diarrhoea [Unknown]
  - Dehydration [Unknown]
  - Nausea [Unknown]

NARRATIVE: CASE EVENT DATE: 2012
